FAERS Safety Report 8590817 (Version 3)
Quarter: 2013Q4

REPORT INFORMATION
  Report Type: Spontaneous
  Country: US (occurrence: US)
  Receive Date: 20120601
  Receipt Date: 20131119
  Transmission Date: 20140711
  Serious: Yes (Death, Hospitalization)
  Sender: FDA-Public Use
  Company Number: US-BAYER-2012-053524

PATIENT
  Age: 24 Year
  Sex: Female
  Weight: 90.25 kg

DRUGS (11)
  1. YASMIN [Suspect]
     Indication: MENSTRUATION IRREGULAR
  2. YASMIN [Suspect]
     Indication: HIRSUTISM
  3. YASMIN [Suspect]
     Indication: POLYCYSTIC OVARIES
  4. YASMIN [Suspect]
     Indication: FOLLICULITIS
  5. SAFYRAL [Suspect]
     Dosage: UNK
     Dates: start: 20110726, end: 20110815
  6. CLINDAMYCIN HYDROCHLORIDE [Concomitant]
     Dosage: 150 MG, UNK
  7. HYDROCODONE W/ACETAMINOPHEN [Concomitant]
  8. IBUPROFEN [Concomitant]
     Dosage: 600 MG, UNK
  9. ACETAMINOPHEN W/CODEINE [Concomitant]
  10. MOTRIN [Concomitant]
     Indication: ABDOMINAL PAIN
  11. GARDASIL [Concomitant]

REACTIONS (3)
  - Death [None]
  - Pulmonary embolism [Fatal]
  - Deep vein thrombosis [Fatal]
